FAERS Safety Report 18356950 (Version 4)
Quarter: 2020Q4

REPORT INFORMATION
  Report Type: Report from Study
  Country: US (occurrence: US)
  Receive Date: 20201007
  Receipt Date: 20201215
  Transmission Date: 20210114
  Serious: Yes (Hospitalization, Other)
  Sender: FDA-Public Use
  Company Number: US-ASTRAZENECA-2020SF29430

PATIENT
  Age: 67 Year
  Sex: Male
  Weight: 59.9 kg

DRUGS (23)
  1. VENCLEXTA [Suspect]
     Active Substance: VENETOCLAX
     Indication: CHRONIC LYMPHOCYTIC LEUKAEMIA
     Route: 048
     Dates: start: 202004, end: 2020
  2. CYCLOBENZAPRINE HYDROCHLORIDE. [Concomitant]
     Active Substance: CYCLOBENZAPRINE HYDROCHLORIDE
  3. VENCLEXTA [Suspect]
     Active Substance: VENETOCLAX
     Indication: CHRONIC LYMPHOCYTIC LEUKAEMIA
     Dosage: SEVEN DAYS
     Route: 048
     Dates: start: 20200612, end: 20200619
  4. ALLOPURINOL. [Concomitant]
     Active Substance: ALLOPURINOL
  5. VITAMIN B12 [Concomitant]
     Active Substance: CYANOCOBALAMIN
  6. VENCLEXTA [Suspect]
     Active Substance: VENETOCLAX
     Indication: CHRONIC LYMPHOCYTIC LEUKAEMIA
     Dosage: EVERY 7 DAYS
     Route: 048
     Dates: start: 202006, end: 2020
  7. VENCLEXTA [Suspect]
     Active Substance: VENETOCLAX
     Indication: CHRONIC LYMPHOCYTIC LEUKAEMIA
     Route: 048
     Dates: start: 202005
  8. IBUPROFEN. [Concomitant]
     Active Substance: IBUPROFEN
  9. CALQUENCE [Suspect]
     Active Substance: ACALABRUTINIB
     Route: 048
  10. VENCLEXTA [Suspect]
     Active Substance: VENETOCLAX
     Indication: CHRONIC LYMPHOCYTIC LEUKAEMIA
     Dosage: SEVEN DAYS
     Route: 048
     Dates: start: 20200610, end: 202006
  11. GABAPENTIN. [Concomitant]
     Active Substance: GABAPENTIN
  12. COENZYME Q10 [Concomitant]
     Active Substance: DIETARY SUPPLEMENT\UBIDECARENONE
  13. LIPITOR [Concomitant]
     Active Substance: ATORVASTATIN CALCIUM
  14. ZOFRAN [Concomitant]
     Active Substance: ONDANSETRON HYDROCHLORIDE
  15. LOMOTIL [Concomitant]
     Active Substance: ATROPINE SULFATE\DIPHENOXYLATE HYDROCHLORIDE
  16. MARINOL [Concomitant]
     Active Substance: DRONABINOL
  17. ZETIA [Concomitant]
     Active Substance: EZETIMIBE
  18. VENCLEXTA [Suspect]
     Active Substance: VENETOCLAX
     Indication: CHRONIC LYMPHOCYTIC LEUKAEMIA
     Route: 048
     Dates: start: 2020, end: 2020
  19. TURMERIC CURCUMIN [Concomitant]
     Active Substance: HERBALS\TURMERIC
  20. VENCLEXTA [Suspect]
     Active Substance: VENETOCLAX
     Indication: CHRONIC LYMPHOCYTIC LEUKAEMIA
     Dosage: EVERY 7 DAYS
     Route: 048
     Dates: start: 20200620, end: 202006
  21. CALCIUM D3 [Concomitant]
     Active Substance: CALCIUM\CHOLECALCIFEROL
  22. VITAMIN C [Concomitant]
     Active Substance: ASCORBIC ACID
  23. VITAMIN D3 [Concomitant]
     Active Substance: CHOLECALCIFEROL

REACTIONS (15)
  - Nausea [Unknown]
  - Vomiting [Unknown]
  - Joint swelling [Unknown]
  - Nocturia [Unknown]
  - Headache [Unknown]
  - Post procedural contusion [Unknown]
  - Body height decreased [Not Recovered/Not Resolved]
  - Paraesthesia [Not Recovered/Not Resolved]
  - Platelet count decreased [Recovering/Resolving]
  - Fatigue [Unknown]
  - Peripheral swelling [Unknown]
  - Neuropathy peripheral [Not Recovered/Not Resolved]
  - Pain [Unknown]
  - Asthenia [Unknown]
  - Blood count abnormal [Recovering/Resolving]

NARRATIVE: CASE EVENT DATE: 2020
